FAERS Safety Report 15866801 (Version 4)
Quarter: 2019Q1

REPORT INFORMATION
  Report Type: Spontaneous
  Country: JP (occurrence: JP)
  Receive Date: 20190125
  Receipt Date: 20190324
  Transmission Date: 20190417
  Serious: Yes (Life-Threatening)
  Sender: FDA-Public Use
  Company Number: JP-ELI_LILLY_AND_COMPANY-JP201901010645

PATIENT
  Sex: Male
  Weight: 55 kg

DRUGS (7)
  1. RABBIT VACCINIA EXTRACT [Concomitant]
     Active Substance: ORYCTOLAGUS CUNICULUS SKIN
     Indication: OSTEOARTHRITIS
     Dosage: 8 DF, BID
     Route: 048
     Dates: start: 20181130
  2. DULOXETINE HYDROCHLORIDE. [Suspect]
     Active Substance: DULOXETINE HYDROCHLORIDE
     Indication: OSTEOARTHRITIS
     Dosage: 20 MG, DAILY
     Route: 048
     Dates: start: 20181116, end: 20181129
  3. DULOXETINE HYDROCHLORIDE. [Suspect]
     Active Substance: DULOXETINE HYDROCHLORIDE
     Dosage: 40 MG, DAILY
     Route: 048
     Dates: start: 20181130, end: 20181220
  4. DULOXETINE HYDROCHLORIDE. [Suspect]
     Active Substance: DULOXETINE HYDROCHLORIDE
     Dosage: 40 MG, DAILY
     Dates: start: 201901
  5. LOXOPROFEN [Concomitant]
     Active Substance: LOXOPROFEN
     Indication: INFLAMMATORY PAIN
     Dosage: 60 MG, TID
     Route: 048
     Dates: start: 20181130
  6. DULOXETINE HYDROCHLORIDE. [Suspect]
     Active Substance: DULOXETINE HYDROCHLORIDE
     Dosage: 60 MG, DAILY
     Route: 048
     Dates: start: 20181221, end: 201901
  7. NAUZELIN [Concomitant]
     Active Substance: DOMPERIDONE
     Indication: PROPHYLAXIS
     Dosage: 10 MG, DAILY
     Route: 048
     Dates: start: 20181116, end: 20181129

REACTIONS (2)
  - Intentional self-injury [Unknown]
  - Adjustment disorder [Recovering/Resolving]

NARRATIVE: CASE EVENT DATE: 201812
